FAERS Safety Report 4924830-2 (Version None)
Quarter: 2006Q1

REPORT INFORMATION
  Report Type: 
  Country: None (occurrence: None)
  Receive Date: 20060222
  Receipt Date: 20060207
  Transmission Date: 20060701
  Serious: Yes (Hospitalization)
  Sender: FDA-Public Use
  Company Number: 235418K05USA

PATIENT
  Age: 39 Year
  Sex: Female

DRUGS (1)
  1. REBIF [Suspect]
     Indication: MULTIPLE SCLEROSIS
     Dosage: SEE IMAGE
     Route: 058
     Dates: start: 20030703, end: 20051201

REACTIONS (11)
  - CULTURE WOUND POSITIVE [None]
  - FAT NECROSIS [None]
  - INJECTION SITE ABSCESS [None]
  - INJECTION SITE INDURATION [None]
  - INJECTION SITE NECROSIS [None]
  - INJECTION SITE PAIN [None]
  - INJECTION SITE ULCER [None]
  - SEPSIS [None]
  - SERRATIA INFECTION [None]
  - SKIN DISCOLOURATION [None]
  - WOUND SECRETION [None]
